FAERS Safety Report 7517965-1 (Version None)
Quarter: 2011Q2

REPORT INFORMATION
  Report Type: 
  Country: None (occurrence: None)
  Receive Date: 20110527
  Receipt Date: 20110527
  Transmission Date: 20111010
  Serious: No
  Sender: FDA-Public Use
  Company Number: None

PATIENT
  Age: 61 Year
  Sex: Female

DRUGS (1)
  1. CREST W/ FLUORIDE [Suspect]

REACTIONS (6)
  - GINGIVAL PAIN [None]
  - APHTHOUS STOMATITIS [None]
  - OROPHARYNGEAL BLISTERING [None]
  - ORAL FUNGAL INFECTION [None]
  - ORAL LICHEN PLANUS [None]
  - OROPHARYNGEAL SWELLING [None]
